FAERS Safety Report 7292320-0 (Version None)
Quarter: 2011Q1

REPORT INFORMATION
  Report Type: 
  Country: None (occurrence: None)
  Receive Date: 20110215
  Receipt Date: 20110210
  Transmission Date: 20110831
  Serious: Yes (Life-Threatening, Other)
  Sender: FDA-Public Use
  Company Number: BR-BAYER-2011-013465

PATIENT
  Sex: Female
  Weight: 56 kg

DRUGS (1)
  1. YASMIN [Suspect]
     Indication: CONTRACEPTION
     Dosage: UNK
     Route: 048
     Dates: start: 20110207, end: 20110208

REACTIONS (6)
  - CARDIAC ARREST [None]
  - FEELING ABNORMAL [None]
  - INSOMNIA [None]
  - FATIGUE [None]
  - DYSPNOEA [None]
  - AGITATION [None]
